FAERS Safety Report 21891758 (Version 1)
Quarter: 2023Q1

REPORT INFORMATION
  Report Type: Spontaneous
  Country: BR (occurrence: BR)
  Receive Date: 20230120
  Receipt Date: 20230120
  Transmission Date: 20230417
  Serious: Yes (Other)
  Sender: FDA-Public Use
  Company Number: BR-AMGEN-BRASP2023005452

PATIENT
  Age: 84 Year
  Sex: Female
  Weight: 78 kg

DRUGS (3)
  1. PROLIA [Suspect]
     Active Substance: DENOSUMAB
     Indication: Bone disorder
     Dosage: 60 MILLIGRAM
     Route: 065
  2. VITAMINS [Concomitant]
     Active Substance: VITAMINS
  3. PHOSPHOR [Concomitant]

REACTIONS (3)
  - Osteoarthritis [Unknown]
  - Fall [Unknown]
  - Joint dislocation [Unknown]
